FAERS Safety Report 16094295 (Version 1)
Quarter: 2019Q2

REPORT INFORMATION
  Report Type: Spontaneous
  Country: US (occurrence: US)
  Receive Date: 20190319
  Receipt Date: 20190319
  Transmission Date: 20190711
  Serious: Yes (Disabling)
  Sender: FDA-Public Use
  Company Number: None

PATIENT
  Age: 57 Year
  Sex: Female
  Weight: 103.5 kg

DRUGS (1)
  1. XYZAL [Suspect]
     Active Substance: LEVOCETIRIZINE DIHYDROCHLORIDE
     Indication: SEASONAL ALLERGY
     Dosage: ?          OTHER STRENGTH:UNKNOWN;QUANTITY:1 TABLET(S);?
     Route: 048
     Dates: start: 20180616, end: 20190313

REACTIONS (1)
  - Pruritus [None]

NARRATIVE: CASE EVENT DATE: 20190319
